FAERS Safety Report 15026611 (Version 3)
Quarter: 2018Q3

REPORT INFORMATION
  Report Type: Report from Study
  Country: NL (occurrence: NL)
  Receive Date: 20180618
  Receipt Date: 20180718
  Transmission Date: 20181010
  Serious: Yes (Hospitalization)
  Sender: FDA-Public Use
  Company Number: NL-VERTEX PHARMACEUTICALS-2018-003998

PATIENT
  Age: 30 Year
  Sex: Female

DRUGS (9)
  1. PANCREASE                          /00014701/ [Concomitant]
     Indication: PANCREATIC FAILURE
     Dosage: UNK
     Route: 048
  2. SALBUTAMOL [Concomitant]
     Active Substance: ALBUTEROL
     Indication: PROPHYLAXIS
     Dosage: 200 UG, Q4D
  3. ADEK [Concomitant]
     Indication: PANCREATIC FAILURE
     Dosage: UNK, PRN
     Route: 048
  4. AZTREONAM. [Concomitant]
     Active Substance: AZTREONAM
     Indication: PSEUDOMONAS INFECTION
     Dosage: 75 MG
     Route: 055
  5. SERETIDE [Concomitant]
     Active Substance: FLUTICASONE PROPIONATE\SALMETEROL XINAFOATE
     Indication: PROPHYLAXIS
     Dosage: 25/250 MICROGRAM, BID
     Route: 055
  6. IPRATROPIUM/SALBUTAMOL SANDOZ [Concomitant]
     Indication: PROPHYLAXIS
     Dosage: 10.2 MG/ML, QD
  7. VX?661/VX?770 [Suspect]
     Active Substance: IVACAFTOR\TEZACAFTOR
     Indication: CYSTIC FIBROSIS
     Dosage: UNK
     Route: 048
     Dates: start: 20160425
  8. LEVEMIR [Concomitant]
     Active Substance: INSULIN DETEMIR
     Indication: CYSTIC FIBROSIS RELATED DIABETES
     Dosage: UNK, PRN
     Route: 058
  9. ETHINYLESTRADIOL W/LEVONORGESTREL [Concomitant]
     Active Substance: ETHINYL ESTRADIOL\LEVONORGESTREL
     Indication: CONTRACEPTION
     Dosage: 30/150 MICROGRAM, QD
     Route: 048

REACTIONS (1)
  - Meningitis viral [Recovered/Resolved]

NARRATIVE: CASE EVENT DATE: 20180605
